FAERS Safety Report 8524389-7 (Version None)
Quarter: 2012Q3

REPORT INFORMATION
  Report Type: 
  Country: None (occurrence: None)
  Receive Date: 20120720
  Receipt Date: 20120711
  Transmission Date: 20120928
  Serious: Yes (Hospitalization, Other)
  Sender: FDA-Public Use
  Company Number: FR-VERTEX PHARMACEUTICALS INC.-AE-2011-000194

PATIENT
  Sex: Female
  Weight: 110 kg

DRUGS (13)
  1. PRAXILENE [Concomitant]
     Indication: PHLEBITIS
  2. NEXIUM [Concomitant]
     Indication: PRODUCT USED FOR UNKNOWN INDICATION
     Route: 065
  3. NEORECORMON [Concomitant]
  4. VX-950 [Suspect]
     Indication: HEPATITIS C
     Route: 048
     Dates: start: 20110307, end: 20110531
  5. NEUPOGEN [Concomitant]
     Route: 058
  6. REPAGLINIDE [Concomitant]
     Indication: TYPE 2 DIABETES MELLITUS
     Route: 058
     Dates: start: 20100101
  7. PLAVIX [Concomitant]
     Indication: PHLEBITIS
     Route: 048
  8. RIBAVIRIN [Concomitant]
     Indication: HEPATITIS C
     Route: 048
     Dates: start: 20110308, end: 20110901
  9. PEGINTERFERON ALFA-2A [Concomitant]
     Indication: HEPATITIS C
     Route: 058
     Dates: start: 20110308, end: 20111101
  10. LERCANIDIPINE [Concomitant]
     Indication: HYPERTENSION
     Dates: start: 20100101
  11. QUININE SULFATE [Concomitant]
     Indication: MUSCLE SPASMS
     Route: 048
     Dates: start: 20100101
  12. VICTOZA [Concomitant]
     Indication: TYPE 2 DIABETES MELLITUS
     Route: 058
     Dates: start: 20110101
  13. VALSARTAN  AND HYDROCHLOROTHIAZIDE [Concomitant]
     Indication: HYPERTENSION
     Route: 048
     Dates: start: 20100101

REACTIONS (7)
  - LYMPHADENOPATHY MEDIASTINAL [None]
  - INFLUENZA LIKE ILLNESS [None]
  - PANCYTOPENIA [None]
  - VOMITING [None]
  - ANAEMIA [None]
  - ASTHENIA [None]
  - NAUSEA [None]
